FAERS Safety Report 4393812-4 (Version None)
Quarter: 2004Q3

REPORT INFORMATION
  Report Type: 
  Country: None (occurrence: None)
  Receive Date: 20040707
  Receipt Date: 20040628
  Transmission Date: 20050211
  Serious: Yes (Hospitalization)
  Sender: FDA-Public Use
  Company Number: FRWYE859628JUN04

PATIENT
  Age: 34 Year
  Sex: Male

DRUGS (2)
  1. TAZOCILLINE (PIPERACILLIN/TAZOBACTAM, INJECTION) [Suspect]
     Indication: LUNG INFECTION PSEUDOMONAL
     Dosage: INTRAVENOUS
     Route: 042
     Dates: start: 20040506, end: 20040512
  2. CIPROFLOXACIN [Concomitant]

REACTIONS (11)
  - BLOOD CREATININE INCREASED [None]
  - CYTOLYTIC HEPATITIS [None]
  - DRUG HYPERSENSITIVITY [None]
  - HAEMOGLOBIN DECREASED [None]
  - LIPASE INCREASED [None]
  - LYMPHOCYTE MORPHOLOGY ABNORMAL [None]
  - LYMPHOPENIA [None]
  - NEUTROPENIA [None]
  - PROTEINURIA [None]
  - PYREXIA [None]
  - SERUM FERRITIN INCREASED [None]
